FAERS Safety Report 11937844 (Version 1)
Quarter: 2016Q1

REPORT INFORMATION
  Report Type: Spontaneous
  Country: US (occurrence: None)
  Receive Date: 20160120
  Receipt Date: 20160120
  Transmission Date: 20160526
  Serious: Yes (Disabling, Other)
  Sender: FDA-Public Use
  Company Number: None

PATIENT
  Age: 12045 Day
  Sex: Male
  Weight: 72 kg

DRUGS (3)
  1. CENTRUM MULTI-VITAMINS [Concomitant]
  2. SYNTHROID [Concomitant]
     Active Substance: LEVOTHYROXINE SODIUM
  3. OPTIMARK [Suspect]
     Active Substance: GADOVERSETAMIDE

REACTIONS (6)
  - Gait disturbance [None]
  - Eye disorder [None]
  - Myalgia [None]
  - Arthropathy [None]
  - Musculoskeletal stiffness [None]
  - Muscular weakness [None]

NARRATIVE: CASE EVENT DATE: 20151113
